FAERS Safety Report 4563850-7 (Version None)
Quarter: 2005Q1

REPORT INFORMATION
  Report Type: 
  Country: None (occurrence: None)
  Receive Date: 20050128
  Receipt Date: 20041015
  Transmission Date: 20050727
  Serious: No
  Sender: FDA-Public Use
  Company Number: US-GLAXOSMITHKLINE-A0530044A

PATIENT
  Age: 46 Year
  Sex: Male

DRUGS (21)
  1. LEXIVA [Suspect]
     Indication: HIV INFECTION
     Dosage: 1400MG TWICE PER DAY
     Route: 048
     Dates: start: 20040916
  2. KLONOPIN [Suspect]
     Indication: ANXIETY
     Dosage: 1MG VARIABLE DOSE
  3. BECONASE [Concomitant]
  4. SALINE NASAL SPRAY [Concomitant]
  5. AMITRIPTYLINE [Concomitant]
  6. PROCHLORPERAZINE [Concomitant]
  7. HYDROXYZINE [Concomitant]
  8. IMODIUM [Concomitant]
  9. VALTREX [Concomitant]
  10. WELLBUTRIN SR [Concomitant]
  11. VIREAD [Concomitant]
  12. AZT [Concomitant]
  13. SINGULAIR [Concomitant]
  14. THEOPHYLLINE [Concomitant]
  15. SPIRIVA [Concomitant]
  16. SEREVENT [Concomitant]
  17. ATROVENT [Concomitant]
  18. ALBUTEROL [Concomitant]
  19. ASPIRIN [Concomitant]
  20. TYLENOL [Concomitant]
  21. ALUMINUM HYDROXIDE AND MAGNESIUM TRISILICATE [Concomitant]

REACTIONS (3)
  - DRUG INTERACTION [None]
  - FATIGUE [None]
  - SOMNOLENCE [None]
